FAERS Safety Report 15741793 (Version 1)
Quarter: 2018Q4

REPORT INFORMATION
  Report Type: Spontaneous
  Country: FR (occurrence: FR)
  Receive Date: 20181219
  Receipt Date: 20181219
  Transmission Date: 20190205
  Serious: Yes (Other)
  Sender: FDA-Public Use
  Company Number: FR-TEVA-2018-FR-988122

PATIENT
  Age: 62 Year
  Sex: Male
  Weight: 62 kg

DRUGS (6)
  1. CEFEPIME [Suspect]
     Active Substance: CEFEPIME HYDROCHLORIDE
     Indication: INFECTION
     Route: 042
     Dates: start: 20181109, end: 20181109
  2. TRAMADOL (CHLORHYDRATE DE) [Concomitant]
     Active Substance: TRAMADOL HYDROCHLORIDE
  3. VENTOLINE [Concomitant]
     Active Substance: ALBUTEROL
  4. DOLIPRANE [Concomitant]
     Active Substance: ACETAMINOPHEN
  5. VANCOMYCINE [Suspect]
     Active Substance: VANCOMYCIN
     Indication: INFECTION
     Route: 042
     Dates: start: 20181109, end: 20181109
  6. GENTAMICINE [Suspect]
     Active Substance: GENTAMICIN
     Indication: INFECTION
     Route: 042
     Dates: start: 20181109, end: 20181109

REACTIONS (2)
  - Pruritus [Recovered/Resolved]
  - Erythema [Recovered/Resolved]

NARRATIVE: CASE EVENT DATE: 20181109
